FAERS Safety Report 16828143 (Version 1)
Quarter: 2019Q3

REPORT INFORMATION
  Report Type: Spontaneous
  Country: US (occurrence: US)
  Receive Date: 20190919
  Receipt Date: 20190919
  Transmission Date: 20191005
  Serious: No
  Sender: FDA-Public Use
  Company Number: US-TEVA-2019-US-1109223

PATIENT
  Sex: Female

DRUGS (1)
  1. PREGABALIN. [Suspect]
     Active Substance: PREGABALIN
     Indication: FIBROMYALGIA
     Dosage: 300 MILLIGRAM DAILY;
     Route: 048
     Dates: start: 201908

REACTIONS (4)
  - Formication [Recovering/Resolving]
  - Paraesthesia [Recovering/Resolving]
  - Temperature intolerance [Recovering/Resolving]
  - Drug ineffective [Unknown]
